FAERS Safety Report 19197165 (Version 1)
Quarter: 2021Q2

REPORT INFORMATION
  Report Type: Other
  Country: CA (occurrence: CA)
  Receive Date: 20210430
  Receipt Date: 20210430
  Transmission Date: 20210717
  Serious: Yes (Death, Life-Threatening, Disabling, Other)
  Sender: FDA-Public Use
  Company Number: CA-CYCLE PHARMACEUTICALS LTD-2021-CYC-000010

PATIENT
  Age: 16 Year
  Sex: Male
  Weight: 67 kg

DRUGS (8)
  1. NITISINONE [Suspect]
     Active Substance: NITISINONE
     Dosage: 45 MG, 1 EVERY 1 DAYS
     Route: 048
  2. NITISINONE [Suspect]
     Active Substance: NITISINONE
     Dosage: 47 MG, 1 EVERY 1 DAYS
     Route: 048
  3. LORAZEPAM. [Concomitant]
     Active Substance: LORAZEPAM
     Indication: PRODUCT USED FOR UNKNOWN INDICATION
     Route: 065
  4. NITISINONE [Suspect]
     Active Substance: NITISINONE
     Indication: TYROSINAEMIA
     Dosage: 55 MG, 1 EVERY 1 DAYS
     Route: 048
  5. NITISINONE [Suspect]
     Active Substance: NITISINONE
     Dosage: 20 MG, 1 EVERY 1 DAYS
     Route: 048
  6. NITISINONE [Suspect]
     Active Substance: NITISINONE
     Dosage: 15 MG, 1 EVERY 1 DAYS
     Route: 048
  7. NITISINONE [Suspect]
     Active Substance: NITISINONE
     Dosage: 20 MG, 2 EVERY 1 DAYS
     Route: 048
  8. NITISINONE [Suspect]
     Active Substance: NITISINONE
     Dosage: 25 MG, 2 EVERY 1 DAYS
     Route: 048

REACTIONS (3)
  - Liver transplant [Fatal]
  - Procedural complication [Fatal]
  - Hepatocellular carcinoma [Fatal]
